FAERS Safety Report 4383401-X (Version None)
Quarter: 2004Q2

REPORT INFORMATION
  Report Type: 
  Country: None (occurrence: None)
  Receive Date: 20040623
  Receipt Date: 20030527
  Transmission Date: 20050107
  Serious: Yes (Other)
  Sender: FDA-Public Use
  Company Number: PHEH2003US04407

PATIENT
  Age: 52 Year
  Sex: Male
  Weight: 98 kg

DRUGS (4)
  1. LESCOL [Suspect]
     Indication: HYPERCHOLESTEROLAEMIA
     Dosage: 40 MG, QD
     Dates: start: 20020101, end: 20040501
  2. PRAVACHOL [Concomitant]
  3. HYDRODIURIL [Concomitant]
  4. LISINOPRIL [Concomitant]

REACTIONS (4)
  - ABDOMINAL DISCOMFORT [None]
  - HAEMATEMESIS [None]
  - HEPATIC ENZYME INCREASED [None]
  - NAUSEA [None]
